FAERS Safety Report 19120775 (Version 2)
Quarter: 2021Q2

REPORT INFORMATION
  Report Type: Spontaneous
  Country: DE (occurrence: DE)
  Receive Date: 20210412
  Receipt Date: 20210507
  Transmission Date: 20210717
  Serious: Yes (Other)
  Sender: FDA-Public Use
  Company Number: NVSC2021DE072838

PATIENT
  Age: 70 Year
  Sex: Female
  Weight: 61 kg

DRUGS (5)
  1. SANDOSTATIN [Suspect]
     Active Substance: OCTREOTIDE ACETATE
  2. SANDOSTATIN [Suspect]
     Active Substance: OCTREOTIDE ACETATE
     Dosage: 30 MG, QMO
     Route: 065
  3. EUTHYROX [Suspect]
     Active Substance: LEVOTHYROXINE SODIUM
     Indication: POST PROCEDURAL HYPOTHYROIDISM
     Dosage: 75 UG, QD
     Route: 065
  4. SANDOSTATIN [Suspect]
     Active Substance: OCTREOTIDE ACETATE
     Indication: NEUROENDOCRINE TUMOUR
     Dosage: 10 MG
     Route: 065
  5. DAOSIN [Concomitant]
     Indication: DYSPEPSIA
     Dosage: UNK
     Route: 065

REACTIONS (17)
  - Neuroendocrine tumour [Unknown]
  - Contrast media allergy [Unknown]
  - Colon cancer [Unknown]
  - Asthenia [Unknown]
  - Dizziness [Unknown]
  - Varicose vein [Unknown]
  - Syncope [Unknown]
  - Nausea [Unknown]
  - Metastases to liver [Unknown]
  - Thrombosis [Unknown]
  - Weight decreased [Unknown]
  - Diarrhoea [Unknown]
  - Palpitations [Unknown]
  - Stress [Unknown]
  - Dyspnoea [Unknown]
  - Eczema [Not Recovered/Not Resolved]
  - Thyroid function test abnormal [Unknown]
